FAERS Safety Report 25555969 (Version 2)
Quarter: 2025Q3

REPORT INFORMATION
  Report Type: Spontaneous
  Country: US (occurrence: US)
  Receive Date: 20250715
  Receipt Date: 20250918
  Transmission Date: 20251020
  Serious: No
  Sender: SANOFI AVENTIS
  Company Number: US-SA-2025SA197082

PATIENT
  Age: 65 Year
  Sex: Female

DRUGS (3)
  1. DUPIXENT [Suspect]
     Active Substance: DUPILUMAB
     Indication: Eczema
     Route: 058
     Dates: start: 20250416, end: 20250416
  2. DUPIXENT [Suspect]
     Active Substance: DUPILUMAB
     Dosage: 300 MG, QOW
     Route: 058
     Dates: start: 2025
  3. CLOBETASOL [Suspect]
     Active Substance: CLOBETASOL

REACTIONS (8)
  - Abdominal pain upper [Unknown]
  - Skin atrophy [Unknown]
  - Condition aggravated [Unknown]
  - Toothache [Recovered/Resolved]
  - Headache [Unknown]
  - Erythema [Unknown]
  - Dry eye [Unknown]
  - Therapeutic product effect incomplete [Unknown]

NARRATIVE: CASE EVENT DATE: 20250101
